FAERS Safety Report 18229491 (Version 1)
Quarter: 2020Q3

REPORT INFORMATION
  Report Type: Spontaneous
  Country: US (occurrence: US)
  Receive Date: 20200903
  Receipt Date: 20200903
  Transmission Date: 20201103
  Serious: No
  Sender: FDA-Public Use
  Company Number: US-GALDERMA-US2020012100

PATIENT
  Sex: Female

DRUGS (2)
  1. CLOBEX [Suspect]
     Active Substance: CLOBETASOL PROPIONATE
     Indication: ALOPECIA
     Dosage: 0.05%
     Route: 061
  2. CLOBEX [Suspect]
     Active Substance: CLOBETASOL PROPIONATE
     Indication: ALOPECIA
     Dosage: 0.05%
     Route: 061

REACTIONS (9)
  - Hair texture abnormal [Unknown]
  - Intervertebral disc protrusion [Unknown]
  - Alopecia [Unknown]
  - Hair growth abnormal [Unknown]
  - Immune system disorder [Unknown]
  - Intentional product misuse [Recovered/Resolved]
  - Intentional product use issue [Recovered/Resolved]
  - Malaise [Unknown]
  - Intentional underdose [Recovered/Resolved]
